FAERS Safety Report 17962668 (Version 1)
Quarter: 2020Q2

REPORT INFORMATION
  Report Type: Spontaneous
  Country: GB (occurrence: GB)
  Receive Date: 20200630
  Receipt Date: 20200630
  Transmission Date: 20200714
  Serious: Yes (Other)
  Sender: FDA-Public Use
  Company Number: GB-MYLANLABS-2020M1060184

PATIENT
  Sex: Male

DRUGS (1)
  1. CLOZARIL [Suspect]
     Active Substance: CLOZAPINE
     Indication: SCHIZOPHRENIA
     Dosage: UNK
     Route: 048
     Dates: start: 20020822, end: 20200620

REACTIONS (6)
  - Headache [Unknown]
  - Hangover [Unknown]
  - Papilloedema [Unknown]
  - Pruritus [Unknown]
  - Muscle twitching [Unknown]
  - Hot flush [Unknown]
